FAERS Safety Report 4643423-8 (Version None)
Quarter: 2005Q2

REPORT INFORMATION
  Report Type: 
  Country: None (occurrence: None)
  Receive Date: 20050324
  Receipt Date: 20050214
  Transmission Date: 20051028
  Serious: Yes (Other)
  Sender: FDA-Public Use
  Company Number: 212423

PATIENT
  Age: 73 Year
  Sex: Female

DRUGS (2)
  1. AVASTIN [Suspect]
     Indication: RENAL CELL CARCINOMA STAGE UNSPECIFIED
     Dosage: 15 MG/KG,INTRAVENOUS; 10 MG/KG,INTRAVENOUS
     Route: 042
     Dates: start: 20050114, end: 20050211
  2. AVASTIN [Suspect]
     Indication: RENAL CELL CARCINOMA STAGE UNSPECIFIED
     Dosage: 15 MG/KG,INTRAVENOUS; 10 MG/KG,INTRAVENOUS
     Route: 042
     Dates: start: 20050107

REACTIONS (4)
  - CHILLS [None]
  - HEADACHE [None]
  - HYPERTENSION [None]
  - RETCHING [None]
